FAERS Safety Report 9974306 (Version 1)
Quarter: 2014Q1

REPORT INFORMATION
  Report Type: Report from Study
  Country: US (occurrence: US)
  Receive Date: 20140306
  Receipt Date: 20140306
  Transmission Date: 20141002
  Serious: No
  Sender: FDA-Public Use
  Company Number: US-ABBVIE-13P-163-1155382-00

PATIENT
  Age: 52 Year
  Sex: Female

DRUGS (19)
  1. HUMIRA [Suspect]
     Indication: PSORIASIS
     Dates: start: 20130808
  2. HUMIRA [Suspect]
     Dates: start: 20130924
  3. VITAMIN B12 [Concomitant]
     Indication: VITAMIN B12 DECREASED
     Dosage: 1500 MCG IM WEEKLY
  4. ELMIRON [Concomitant]
     Indication: CYSTITIS INTERSTITIAL
     Dosage: 2 IN AM AND 1 IN PM
  5. ATARAX [Concomitant]
     Indication: CYSTITIS INTERSTITIAL
     Dosage: 25 MG DAILY
  6. MYRBETRIQ [Concomitant]
     Indication: URINARY INCONTINENCE
     Dosage: DAILY
  7. NEURONTIN [Concomitant]
     Indication: BACK PAIN
     Dosage: 800 MG, 1-2 DAILY
  8. NEURONTIN [Concomitant]
     Indication: NECK PAIN
  9. SKELAXIN [Concomitant]
     Indication: BACK PAIN
     Dosage: AS NEEDED
  10. SKELAXIN [Concomitant]
     Indication: NECK PAIN
  11. MELOXICAM [Concomitant]
     Indication: BACK PAIN
     Dosage: 7.5 MG DAILY
  12. MELOXICAM [Concomitant]
     Indication: NECK PAIN
  13. CYMBALTA [Concomitant]
     Indication: FIBROMYALGIA
     Dosage: 60 MG DAILY
  14. TRAZODONE [Concomitant]
     Indication: INSOMNIA
     Dosage: EVERY BEDTIME
  15. LEXAPRO [Concomitant]
     Indication: OBSESSIVE-COMPULSIVE DISORDER
     Dosage: 20 MG DAILY
  16. RESTASIS [Concomitant]
     Indication: DRY EYE
     Dosage: 2 GTTS OU
  17. MVI [Concomitant]
     Indication: PRODUCT USED FOR UNKNOWN INDICATION
     Dosage: DAILY
  18. CALCIUM + VITAMIN D [Concomitant]
     Indication: PRODUCT USED FOR UNKNOWN INDICATION
     Dosage: DAILY
  19. PROBIOTIC [Concomitant]
     Indication: PRODUCT USED FOR UNKNOWN INDICATION
     Dosage: DAILY

REACTIONS (2)
  - Bronchitis [Recovering/Resolving]
  - Psoriasis [Unknown]
